FAERS Safety Report 5208296-3 (Version None)
Quarter: 2007Q1

REPORT INFORMATION
  Report Type: 
  Country: None (occurrence: None)
  Receive Date: 20070110
  Receipt Date: 20070110
  Transmission Date: 20070707
  Serious: Yes (Death, Other)
  Sender: FDA-Public Use
  Company Number: None

PATIENT
  Sex: Female

DRUGS (1)
  1. METFORMIN 500 MG [Suspect]
     Dosage: ONE BID PO
     Route: 048

REACTIONS (1)
  - DIARRHOEA [None]
